FAERS Safety Report 10497313 (Version 1)
Quarter: 2014Q4

REPORT INFORMATION
  Report Type: Spontaneous
  Country: US (occurrence: US)
  Receive Date: 20141006
  Receipt Date: 20141006
  Transmission Date: 20150528
  Serious: Yes (Other)
  Sender: FDA-Public Use
  Company Number: PHEH2014US019034

PATIENT
  Age: 43 Year
  Sex: Female

DRUGS (2)
  1. TRAMADOL [Suspect]
     Active Substance: TRAMADOL
  2. GILENYA [Suspect]
     Active Substance: FINGOLIMOD HYDROCHLORIDE
     Dates: start: 20131021

REACTIONS (8)
  - Seizure [Recovered/Resolved]
  - Cough [Unknown]
  - Haemoptysis [Unknown]
  - Aspiration [Unknown]
  - Haematemesis [Unknown]
  - Pyrexia [Unknown]
  - Loss of consciousness [Recovered/Resolved]
  - Lung abscess [Recovering/Resolving]

NARRATIVE: CASE EVENT DATE: 20140716
